FAERS Safety Report 5828942-0 (Version None)
Quarter: 2008Q3

REPORT INFORMATION
  Report Type: 
  Country: None (occurrence: None)
  Receive Date: 20080731
  Receipt Date: 20080417
  Transmission Date: 20090109
  Serious: No
  Sender: FDA-Public Use
  Company Number: US-BAYER-200811759BCC

PATIENT
  Age: 88 Year
  Sex: Female
  Weight: 78 kg

DRUGS (7)
  1. ALEVE [Suspect]
     Indication: ARTHRALGIA
     Dosage: TOTAL DAILY DOSE: 440 MG  UNIT DOSE: 220 MG
     Route: 048
     Dates: start: 20080417
  2. TENORMIN [Concomitant]
     Route: 048
  3. LOTENSIN [Concomitant]
     Route: 048
  4. CRESTOR [Concomitant]
     Route: 048
  5. INSULIN [Concomitant]
  6. VITAMIN C AND E [Concomitant]
     Route: 048
  7. MULTIPLE VITAMIN [Concomitant]
     Route: 048

REACTIONS (2)
  - ARTHRALGIA [None]
  - PAIN IN EXTREMITY [None]
